FAERS Safety Report 15547232 (Version 1)
Quarter: 2018Q4

REPORT INFORMATION
  Report Type: Spontaneous
  Country: GB (occurrence: GB)
  Receive Date: 20181024
  Receipt Date: 20181024
  Transmission Date: 20190205
  Serious: Yes (Other)
  Sender: FDA-Public Use
  Company Number: GB-ELI_LILLY_AND_COMPANY-GB201810007495

PATIENT
  Age: 27 Year
  Sex: Male
  Weight: 59 kg

DRUGS (2)
  1. DAPOXETINE [Interacting]
     Active Substance: DAPOXETINE
     Indication: PREMATURE EJACULATION
     Dosage: 30 MG, UNKNOWN
     Route: 048
     Dates: start: 20181002, end: 20181002
  2. TADALAFIL. [Suspect]
     Active Substance: TADALAFIL
     Indication: ERECTILE DYSFUNCTION
     Dosage: 2.5 MG, UNKNOWN
     Route: 048
     Dates: start: 20180922

REACTIONS (2)
  - Dizziness [Recovered/Resolved]
  - Drug interaction [Unknown]

NARRATIVE: CASE EVENT DATE: 20181002
